FAERS Safety Report 17256141 (Version 2)
Quarter: 2020Q1

REPORT INFORMATION
  Report Type: Spontaneous
  Country: AU (occurrence: AU)
  Receive Date: 20200110
  Receipt Date: 20200120
  Transmission Date: 20200409
  Serious: Yes (Hospitalization, Other)
  Sender: FDA-Public Use
  Company Number: AU-BAXTER-2020BAX000372

PATIENT
  Age: 26 Year
  Sex: Female

DRUGS (7)
  1. CARBOPLATIN. [Suspect]
     Active Substance: CARBOPLATIN
     Indication: OVARIAN CANCER METASTATIC
     Route: 065
     Dates: start: 201708
  2. EXEMESTANE. [Suspect]
     Active Substance: EXEMESTANE
     Indication: OVARIAN CANCER METASTATIC
     Route: 065
     Dates: start: 201603
  3. AVASTIN [Suspect]
     Active Substance: BEVACIZUMAB
     Indication: OVARIAN CANCER METASTATIC
     Route: 065
  4. DOXIL [Suspect]
     Active Substance: DOXORUBICIN HYDROCHLORIDE
     Indication: OVARIAN CANCER METASTATIC
     Route: 065
     Dates: start: 201708
  5. GEMCITABINE. [Suspect]
     Active Substance: GEMCITABINE
     Indication: OVARIAN CANCER METASTATIC
     Route: 065
     Dates: start: 201506
  6. CISPLATIN. [Suspect]
     Active Substance: CISPLATIN
     Indication: OVARIAN CANCER METASTATIC
     Route: 065
     Dates: start: 201808
  7. ARIMIDEX [Suspect]
     Active Substance: ANASTROZOLE
     Indication: OVARIAN CANCER METASTATIC
     Route: 065

REACTIONS (9)
  - Ovarian cancer metastatic [Unknown]
  - Autoimmune hepatitis [Unknown]
  - Intestinal obstruction [Recovered/Resolved]
  - Ascites [Unknown]
  - Swelling [Unknown]
  - Metastases to lung [Unknown]
  - Peritoneal disorder [Unknown]
  - Metastases to abdominal wall [Unknown]
  - Malignant neoplasm progression [Unknown]

NARRATIVE: CASE EVENT DATE: 201603
